FAERS Safety Report 7956543-7 (Version None)
Quarter: 2011Q4

REPORT INFORMATION
  Report Type: 
  Country: None (occurrence: None)
  Receive Date: 20111205
  Receipt Date: 20111201
  Transmission Date: 20120403
  Serious: Yes (Other)
  Sender: FDA-Public Use
  Company Number: US-PFIZER INC-2011057189

PATIENT
  Sex: Male

DRUGS (3)
  1. CALAN - SLOW RELEASE [Concomitant]
     Indication: ATRIAL FIBRILLATION
     Dosage: 120 MG, DAILY
     Route: 048
  2. ALTACE [Suspect]
     Indication: CARDIAC DISORDER
     Dosage: 20 MG, UNK
     Route: 048
     Dates: start: 19950101, end: 20100202
  3. ALTACE [Suspect]
     Indication: HYPERTENSION

REACTIONS (4)
  - EYE DISORDER [None]
  - SWELLING FACE [None]
  - OEDEMA MOUTH [None]
  - GASTROOESOPHAGEAL REFLUX DISEASE [None]
